FAERS Safety Report 6081514-8 (Version None)
Quarter: 2009Q1

REPORT INFORMATION
  Report Type: 
  Country: None (occurrence: None)
  Receive Date: 20090213
  Receipt Date: 20090126
  Transmission Date: 20090719
  Serious: Yes (Hospitalization)
  Sender: FDA-Public Use
  Company Number: 1-17490067

PATIENT
  Sex: Male

DRUGS (7)
  1. FENTANYL TRANSDERMAL SYSTEM [Suspect]
     Indication: PAIN
     Dosage: 1 PATCH EVERY 3 DAYS, TRANSDERMAL
     Route: 062
  2. PERCOCET [Suspect]
     Indication: PAIN
     Dosage: ONE TO TWO TABLETS DAILY, ORAL
     Route: 048
     Dates: start: 20081101
  3. KADIAN [Suspect]
     Indication: PAIN
     Dosage: 30 MG EVERY 12 HOURS, ORAL
     Route: 048
  4. ULTRAM [Concomitant]
  5. NEURONTIN [Concomitant]
  6. ELAVIL [Concomitant]
  7. VASOTEC [Concomitant]

REACTIONS (3)
  - ABDOMINAL PAIN [None]
  - DRUG DEPENDENCE [None]
  - DRUG INEFFECTIVE [None]
